FAERS Safety Report 8419046-1 (Version None)
Quarter: 2012Q2

REPORT INFORMATION
  Report Type: 
  Country: None (occurrence: None)
  Receive Date: 20120607
  Receipt Date: 20120604
  Transmission Date: 20120825
  Serious: Yes (Hospitalization)
  Sender: FDA-Public Use
  Company Number: PHHY2012TW047201

PATIENT
  Sex: Female

DRUGS (1)
  1. STARLIX [Suspect]

REACTIONS (3)
  - DRUG INEFFECTIVE [None]
  - URINARY TRACT INFECTION [None]
  - BLOOD GLUCOSE ABNORMAL [None]
